FAERS Safety Report 9666330 (Version 2)
Quarter: 2013Q4

REPORT INFORMATION
  Report Type: Spontaneous
  Country: JP (occurrence: JP)
  Receive Date: 20131104
  Receipt Date: 20131114
  Transmission Date: 20140711
  Serious: Yes (Life-Threatening)
  Sender: FDA-Public Use
  Company Number: JP-ASTRAZENECA-2013SE80221

PATIENT
  Age: 65 Year
  Sex: Female

DRUGS (13)
  1. LIDOCAINE [Suspect]
     Dosage: DOSE UNKNOWN
     Route: 065
  2. REMIFENTANIL HYDROCHLORIDE [Suspect]
     Indication: INDUCTION AND MAINTENANCE OF ANAESTHESIA
     Dosage: DOSE UNKNOWN
     Route: 042
  3. PROPOFOL (NON AZ PRODUCT) [Suspect]
     Indication: INDUCTION OF ANAESTHESIA
     Dosage: 20 ML AMPULE
     Route: 042
  4. ROCURONIUM BROMIDE [Suspect]
     Indication: INDUCTION OF ANAESTHESIA
     Dosage: DOSE UNKNOWN
     Route: 042
  5. SEVOFLURANE [Suspect]
     Indication: MAINTENANCE OF ANAESTHESIA
     Dosage: DOSE UNKNOWN
     Route: 065
  6. EPHEDRIN [Concomitant]
     Dosage: DOSE UNKNOWN
     Route: 065
  7. NEO-SYNESIN [Concomitant]
     Dosage: DOSE UNKNOWN
     Route: 065
  8. DOPAMINE [Concomitant]
     Dosage: DOSE UNKNOWN
     Route: 065
  9. NICORANDIL [Concomitant]
     Dosage: DOSE UNKNOWN
     Route: 065
  10. BEPRIDIL HYDROCHLORIDE HYDRATE [Concomitant]
     Indication: ATRIAL FIBRILLATION
     Dosage: DOSE UNKNOWN
     Route: 065
  11. VERAPAMIL HYDROCHLORIDE [Concomitant]
     Indication: ATRIAL FIBRILLATION
     Dosage: DOSE UNKNOWN
     Route: 065
  12. BISOPROLOL [Concomitant]
     Indication: ATRIAL FIBRILLATION
     Dosage: DOSE UNKNOWN
     Route: 065
  13. CLARITHROMYCIN [Concomitant]
     Indication: OSTEOMYELITIS
     Dosage: DOSE UNKNOWN
     Route: 048

REACTIONS (6)
  - Electrocardiogram QT prolonged [Recovered/Resolved]
  - Torsade de pointes [Recovered/Resolved]
  - Ventricular extrasystoles [Recovered/Resolved]
  - Ventricular fibrillation [Recovered/Resolved]
  - Heart rate decreased [Recovered/Resolved]
  - Blood pressure decreased [Recovered/Resolved]
